FAERS Safety Report 10211297 (Version 2)
Quarter: 2014Q2

REPORT INFORMATION
  Report Type: Spontaneous
  Country: US (occurrence: US)
  Receive Date: 20140602
  Receipt Date: 20140612
  Transmission Date: 20141212
  Serious: Yes (Other)
  Sender: FDA-Public Use
  Company Number: US-GLAXOSMITHKLINE-A1075328A

PATIENT
  Age: 68 Year
  Sex: Male

DRUGS (1)
  1. COREG CR [Suspect]
     Indication: CARDIAC DISORDER
     Dosage: 20MG UNKNOWN
     Route: 065
     Dates: start: 20090323

REACTIONS (1)
  - Cardiac operation [Unknown]
